FAERS Safety Report 4443780-1 (Version None)
Quarter: 2004Q3

REPORT INFORMATION
  Report Type: 
  Country: None (occurrence: None)
  Receive Date: 20040729
  Receipt Date: 20031119
  Transmission Date: 20050211
  Serious: Yes (Other)
  Sender: FDA-Public Use
  Company Number: USA-2003-0012669

PATIENT
  Age: 48 Year
  Sex: Male
  Weight: 86.2 kg

DRUGS (2)
  1. MORPHINE SULFATE [Suspect]
  2. SPEED [Concomitant]

REACTIONS (13)
  - ANXIETY [None]
  - CONTUSION [None]
  - CRYING [None]
  - DRUG ABUSER [None]
  - DYSARTHRIA [None]
  - GAIT DISTURBANCE [None]
  - HOT FLUSH [None]
  - MIOSIS [None]
  - NAUSEA [None]
  - PAIN [None]
  - PRESSURE OF SPEECH [None]
  - SWELLING [None]
  - VOMITING [None]
